FAERS Safety Report 9167691 (Version 1)
Quarter: 2013Q1

REPORT INFORMATION
  Report Type: Spontaneous
  Country: CA (occurrence: None)
  Receive Date: 20130305
  Receipt Date: 20130305
  Transmission Date: 20140127
  Serious: Yes (Life-Threatening, Hospitalization, Other)
  Sender: FDA-Public Use
  Company Number: 2013P1002563

PATIENT
  Age: 57 Year
  Sex: Male

DRUGS (8)
  1. ATENOLOL [Suspect]
     Indication: OVERDOSE
     Route: 048
  2. AMLODIPINE [Concomitant]
  3. LITHIUM [Concomitant]
  4. METHYLPHENIDATE [Concomitant]
  5. LAMOTRIGINE [Concomitant]
  6. LEVOTHYROXINE [Concomitant]
  7. CLONAZEPAM [Concomitant]
  8. MIRTAZAPINE [Concomitant]

REACTIONS (17)
  - Suicide attempt [None]
  - Intentional overdose [None]
  - Hypotension [None]
  - Sinus bradycardia [None]
  - Somnolence [None]
  - Confusional state [None]
  - White blood cell count increased [None]
  - Blood creatinine increased [None]
  - Blood albumin decreased [None]
  - Blood glucose increased [None]
  - Depressed level of consciousness [None]
  - PO2 increased [None]
  - QRS axis abnormal [None]
  - Defect conduction intraventricular [None]
  - Toxicity to various agents [None]
  - Renal impairment [None]
  - Haemodialysis [None]
